FAERS Safety Report 19175039 (Version 1)
Quarter: 2021Q2

REPORT INFORMATION
  Report Type: Report from Study
  Country: BR (occurrence: BR)
  Receive Date: 20210423
  Receipt Date: 20210423
  Transmission Date: 20210717
  Serious: Yes (Hospitalization, Other)
  Sender: FDA-Public Use
  Company Number: BR-TAKEDA-BR202029880

PATIENT
  Age: 54 Year
  Sex: Male
  Weight: 92 kg

DRUGS (8)
  1. DIAZEPAM. [Concomitant]
     Active Substance: DIAZEPAM
     Indication: SLEEP DISORDER
     Dosage: 5 MILLIGRAM
     Dates: start: 2010
  2. FACTOR VIII INHIBITOR BYPASSING FRACTION; BAXJECT II NF [Suspect]
     Active Substance: ANTI-INHIBITOR COAGULANT COMPLEX
     Indication: FACTOR VIII DEFICIENCY
     Dosage: 7000 INTERNATIONAL UNIT, 3/WEEK
     Route: 042
     Dates: start: 2002
  3. FACTOR VIII INHIBITOR BYPASSING FRACTION; BAXJECT II NF [Suspect]
     Active Substance: ANTI-INHIBITOR COAGULANT COMPLEX
     Dosage: 7000 INTERNATIONAL UNIT, 3/WEEK
     Route: 042
     Dates: start: 2009
  4. TYLEX [PARACETAMOL] [Concomitant]
     Active Substance: ACETAMINOPHEN
     Indication: PAIN
     Dosage: 50 MILLIGRAM
     Dates: start: 2010
  5. OCTALBIN [Concomitant]
     Indication: ANTIINFLAMMATORY THERAPY
     Dosage: 50 MILLIGRAM
     Dates: start: 2010
  6. LOSARTAN AND HYDROCHLOROTHIAZIDE [Concomitant]
     Active Substance: HYDROCHLOROTHIAZIDE\LOSARTAN POTASSIUM
     Indication: HYPERTENSION
     Dosage: 50 MILLIGRAM
     Dates: start: 2010
  7. PARACETAMOL [Concomitant]
     Active Substance: ACETAMINOPHEN
     Indication: PAIN
     Dosage: 700 MILLIGRAM, Q6HR
     Route: 065
  8. FACTOR VIII INHIBITOR BYPASSING FRACTION; BAXJECT II NF [Suspect]
     Active Substance: ANTI-INHIBITOR COAGULANT COMPLEX
     Dosage: 7000 INTERNATIONAL UNIT, 2/WEEK
     Route: 042
     Dates: start: 2009

REACTIONS (15)
  - Spontaneous haemorrhage [Recovered/Resolved]
  - Drug ineffective [Unknown]
  - Vomiting [Unknown]
  - Intentional product misuse [Unknown]
  - Haemorrhage [Not Recovered/Not Resolved]
  - Swelling [Recovering/Resolving]
  - Fall [Recovering/Resolving]
  - Pain [Recovered/Resolved]
  - Nausea [Unknown]
  - Haemarthrosis [Recovered/Resolved]
  - Dry skin [Recovering/Resolving]
  - Pyrexia [Unknown]
  - Leg amputation [Unknown]
  - Contusion [Not Recovered/Not Resolved]
  - Dermatitis allergic [Recovering/Resolving]

NARRATIVE: CASE EVENT DATE: 2010
